FAERS Safety Report 7934400-X (Version None)
Quarter: 2011Q4

REPORT INFORMATION
  Report Type: 
  Country: None (occurrence: None)
  Receive Date: 20111122
  Receipt Date: 20111118
  Transmission Date: 20120403
  Serious: Yes (Death)
  Sender: FDA-Public Use
  Company Number: US-GLAXOSMITHKLINE-A0943394A

PATIENT
  Sex: Male

DRUGS (6)
  1. VITAMIN B6 [Concomitant]
  2. ACIPHEX [Concomitant]
  3. LIPITOR [Concomitant]
  4. VOTRIENT [Suspect]
     Indication: BRONCHIAL CARCINOMA
     Dosage: 200MG PER DAY
     Route: 048
     Dates: start: 20110802, end: 20110801
  5. MICROZIDE [Concomitant]
  6. ENALAPRIL MALEATE [Concomitant]

REACTIONS (1)
  - NO ADVERSE EVENT [None]
